FAERS Safety Report 9431294 (Version 1)
Quarter: 2013Q3

REPORT INFORMATION
  Report Type: Spontaneous
  Country: IN (occurrence: IN)
  Receive Date: 20130730
  Receipt Date: 20130730
  Transmission Date: 20140515
  Serious: Yes (Hospitalization)
  Sender: FDA-Public Use
  Company Number: IN-MYLANLABS-2013S1016187

PATIENT
  Age: 8 Year
  Sex: Female

DRUGS (9)
  1. SALBUTAMOL [Suspect]
     Indication: ASTHMA
     Dosage: ONCE A DAY
     Route: 055
  2. SALBUTAMOL [Interacting]
     Indication: ASTHMA
     Dosage: SEVERAL BACK-TO-BACK DOSES 2D BEFORE ADMISSION
     Route: 055
  3. FLUTICASONE PROPIONATE W/SALMETEROL [Interacting]
     Indication: ASTHMA
     Dosage: TWICE A DAY
     Route: 055
  4. ALBUTEROL SULFATE W/IPRATROPIUM BROMIDE [Interacting]
     Dosage: THREE DOSES
     Route: 065
  5. HYDROCORTISONE [Interacting]
     Route: 065
  6. THEOPHYLLINE [Interacting]
     Dosage: INFUSION
     Route: 050
  7. AMOXI-CLAVULANICO [Concomitant]
     Route: 065
  8. TERBUTALINE [Concomitant]
     Route: 058
  9. MAGNESIUM SULFATE [Concomitant]
     Route: 042

REACTIONS (4)
  - Lactic acidosis [Recovering/Resolving]
  - Hyperventilation [Recovering/Resolving]
  - Toxicity to various agents [Recovering/Resolving]
  - Potentiating drug interaction [Recovering/Resolving]
